FAERS Safety Report 14754715 (Version 3)
Quarter: 2018Q3

REPORT INFORMATION
  Report Type: Report from Study
  Country: None (occurrence: CO)
  Receive Date: 20180413
  Receipt Date: 20180911
  Transmission Date: 20181010
  Serious: Yes (Hospitalization, Other)
  Sender: FDA-Public Use
  Company Number: CO-ABBVIE-18K-036-2321029-00

PATIENT
  Age: 45 Year
  Sex: Male

DRUGS (1)
  1. HUMIRA [Suspect]
     Active Substance: ADALIMUMAB
     Indication: PSORIASIS
     Route: 058
     Dates: start: 20140605, end: 20180310

REACTIONS (5)
  - Haematuria [Not Recovered/Not Resolved]
  - Renal cyst [Not Recovered/Not Resolved]
  - Benign prostatic hyperplasia [Unknown]
  - Arthralgia [Unknown]
  - Dysuria [Not Recovered/Not Resolved]

NARRATIVE: CASE EVENT DATE: 201804
